FAERS Safety Report 7858073-X (Version None)
Quarter: 2011Q4

REPORT INFORMATION
  Report Type: 
  Country: None (occurrence: None)
  Receive Date: 20111027
  Receipt Date: 20111025
  Transmission Date: 20120403
  Serious: Yes (Hospitalization)
  Sender: FDA-Public Use
  Company Number: TR-SP-2011-09802

PATIENT
  Sex: Male

DRUGS (1)
  1. TICE BCG [Suspect]
     Indication: BLADDER CANCER
     Route: 030

REACTIONS (5)
  - INFLAMMATION [None]
  - INDURATION [None]
  - INCORRECT ROUTE OF DRUG ADMINISTRATION [None]
  - TUBERCULOSIS [None]
  - PYREXIA [None]
